FAERS Safety Report 8511251-9 (Version None)
Quarter: 2012Q3

REPORT INFORMATION
  Report Type: 
  Country: None (occurrence: None)
  Receive Date: 20120716
  Receipt Date: 20120710
  Transmission Date: 20120928
  Serious: Yes (Hospitalization)
  Sender: FDA-Public Use
  Company Number: US-BAYER-2010-002176

PATIENT
  Age: 38 Year
  Sex: Female
  Weight: 72.562 kg

DRUGS (12)
  1. YASMIN [Suspect]
     Dosage: UNK
     Dates: start: 20060101, end: 20071101
  2. NAPROXEN [Concomitant]
  3. NEXIUM [Concomitant]
     Dosage: 20 MG, QD
     Route: 048
  4. POLYETHYLENE GLYCOL [Concomitant]
     Dosage: MIX THE WHOLE CONTENTS OF POWDER IN 64 OZ (INTERPRETED AS OUNCES) OF WATER
     Dates: start: 20070513
  5. AMOXICILINA CLAV [Concomitant]
  6. WELLBUTRIN [Concomitant]
  7. OXYCODONE HCL AND ACETAMINOPHEN [Concomitant]
  8. BUTALBITAL ACETAMINOPHEN AND CAFFEINE [Concomitant]
  9. METOPROLOL TARTRATE [Concomitant]
     Dosage: 25 MG, DAILY
     Route: 048
     Dates: start: 20000101
  10. OMEPRAZOLE [Concomitant]
  11. CYCLOBENZAPRINE [Concomitant]
  12. BUPROPION HYDROCHLORIDE [Concomitant]

REACTIONS (4)
  - PULMONARY EMBOLISM [None]
  - GALLBLADDER INJURY [None]
  - CHOLECYSTITIS CHRONIC [None]
  - DEEP VEIN THROMBOSIS [None]
